FAERS Safety Report 6869080-8 (Version None)
Quarter: 2010Q3

REPORT INFORMATION
  Report Type: 
  Country: None (occurrence: None)
  Receive Date: 20100722
  Receipt Date: 20080702
  Transmission Date: 20110219
  Serious: No
  Sender: FDA-Public Use
  Company Number: US-PFIZER INC-2008056180

PATIENT
  Sex: Female
  Weight: 75 kg

DRUGS (37)
  1. CHANTIX [Suspect]
     Indication: EX-TOBACCO USER
     Dates: start: 20080623
  2. METHOTREXATE [Concomitant]
  3. PLAQUENIL [Concomitant]
  4. FOLIC ACID [Concomitant]
  5. ETODOLAC [Concomitant]
  6. LISINOPRIL [Concomitant]
  7. SIMVASTATIN [Concomitant]
  8. LEVOTHYROXINE SODIUM [Concomitant]
  9. LEVOTHYROXINE SODIUM [Concomitant]
  10. TRAZODONE [Concomitant]
  11. TRAZODONE [Concomitant]
  12. OMEPRAZOLE [Concomitant]
  13. OMEPRAZOLE [Concomitant]
  14. NASONEX [Concomitant]
  15. NASONEX [Concomitant]
  16. SKELAXIN [Concomitant]
  17. SKELAXIN [Concomitant]
  18. VICODIN [Concomitant]
     Dosage: TWO TO THREE OF 10MG/325MG
  19. VICODIN [Concomitant]
  20. ACETYLSALICYLIC ACID [Concomitant]
  21. ACETYLSALICYLIC ACID [Concomitant]
  22. OXYBUTYNIN CHLORIDE [Concomitant]
  23. OXYBUTYNIN CHLORIDE [Concomitant]
  24. CALCIUM WITH VITAMIN D [Concomitant]
  25. CALCIUM WITH VITAMIN D [Concomitant]
  26. FISH OIL [Concomitant]
  27. FISH OIL [Concomitant]
  28. UBIDECARENONE [Concomitant]
  29. UBIDECARENONE [Concomitant]
  30. VITAMIN B [Concomitant]
  31. VITAMIN B [Concomitant]
  32. MAGNESIUM [Concomitant]
  33. VITAMIN TAB [Concomitant]
  34. ACETYLCARNITINE [Concomitant]
  35. ALPHA LIPOIC ACID [Concomitant]
  36. REMICADE [Concomitant]
  37. VITAMIN C [Concomitant]

REACTIONS (1)
  - NAUSEA [None]
